FAERS Safety Report 15131189 (Version 2)
Quarter: 2022Q3

REPORT INFORMATION
  Report Type: Spontaneous
  Country: US (occurrence: None)
  Receive Date: 20180711
  Receipt Date: 20220811
  Transmission Date: 20221026
  Serious: Yes (Hospitalization, Other)
  Sender: FDA-Public Use
  Company Number: 2018SE88250

PATIENT
  Age: 23131 Day
  Sex: Male

DRUGS (20)
  1. PRILOSEC [Suspect]
     Active Substance: OMEPRAZOLE MAGNESIUM
     Indication: Acidosis
     Route: 048
     Dates: start: 1996
  2. NEXIUM [Suspect]
     Active Substance: ESOMEPRAZOLE MAGNESIUM
     Indication: Acidosis
     Route: 048
  3. PREVACID [Suspect]
     Active Substance: LANSOPRAZOLE
     Indication: Acidosis
     Dosage: 15.0MG UNKNOWN
     Route: 065
     Dates: start: 2014
  4. PREVACID [Suspect]
     Active Substance: LANSOPRAZOLE
     Indication: Acidosis
     Dosage: GENERIC UNKNOWN
     Route: 065
  5. PREVACID 24 HR [Suspect]
     Active Substance: LANSOPRAZOLE
     Indication: Acidosis
     Route: 065
     Dates: start: 1996
  6. PROTONIX [Suspect]
     Active Substance: PANTOPRAZOLE SODIUM
     Indication: Acidosis
     Route: 065
  7. GABAPENTIN [Concomitant]
     Active Substance: GABAPENTIN
     Indication: Neuralgia
  8. WELLBUTRIN [Concomitant]
     Active Substance: BUPROPION HYDROCHLORIDE
     Indication: Injury
  9. LEXAPRO [Concomitant]
     Active Substance: ESCITALOPRAM OXALATE
     Indication: Injury
  10. TRAMADOL [Concomitant]
     Active Substance: TRAMADOL
     Indication: Injury
  11. TESTOSTERONE [Concomitant]
     Active Substance: TESTOSTERONE
     Indication: Injury
  12. FISH OIL [Concomitant]
     Active Substance: FISH OIL
     Indication: Injury
  13. VITAMIN D3 [Concomitant]
     Active Substance: CHOLECALCIFEROL
     Indication: Gastrectomy
  14. VITAMIN B12 [Concomitant]
     Active Substance: CYANOCOBALAMIN
     Indication: Gastrectomy
  15. VITAMINS [Concomitant]
     Active Substance: VITAMINS
     Indication: Gastrectomy
  16. PROBIOTICS NOS [Concomitant]
     Active Substance: PROBIOTICS NOS
     Indication: Gastrectomy
  17. CALCIUM CITRATE [Concomitant]
     Active Substance: CALCIUM CITRATE
     Indication: Gastrectomy
  18. TYLENOL [Concomitant]
     Active Substance: ACETAMINOPHEN
     Indication: Gastrectomy
  19. ROLAIDS [Concomitant]
     Active Substance: CALCIUM CARBONATE\MAGNESIUM HYDROXIDE
  20. TUMS [Concomitant]
     Active Substance: CALCIUM CARBONATE

REACTIONS (3)
  - Chronic kidney disease [Unknown]
  - Renal failure [Unknown]
  - Renal cell carcinoma [Not Recovered/Not Resolved]

NARRATIVE: CASE EVENT DATE: 20200812
